FAERS Safety Report 7086350-1 (Version None)
Quarter: 2010Q4

REPORT INFORMATION
  Report Type: 
  Country: None (occurrence: None)
  Receive Date: 20101027
  Receipt Date: 20100707
  Transmission Date: 20110411
  Serious: Yes (Hospitalization)
  Sender: FDA-Public Use
  Company Number: US-JNJFOC-20100607793

PATIENT
  Age: 43 Year
  Sex: Male
  Weight: 107.5025 kg

DRUGS (9)
  1. DECITABINE (DECITABINE) LYOPHILIZED POWDER [Suspect]
     Indication: METASTATIC MALIGNANT MELANOMA
     Dosage: 8 MG, INTRAVENOUS, 8 MG INTRAVENOUS
     Route: 042
     Dates: start: 20100322, end: 20100402
  2. DECITABINE (DECITABINE) LYOPHILIZED POWDER [Suspect]
     Indication: METASTATIC MALIGNANT MELANOMA
     Dosage: 8 MG, INTRAVENOUS, 8 MG INTRAVENOUS
     Route: 042
     Dates: start: 20100503, end: 20100514
  3. TEMOZOLOMIDE [Suspect]
     Indication: METASTATIC MALIGNANT MELANOMA
     Dosage: 175 MG, ORAL
     Route: 048
     Dates: start: 20100329, end: 20100425
  4. LASIX [Concomitant]
  5. POTASSIUM CHLORIDE [Concomitant]
  6. VICODIN HP (VICODIN) [Concomitant]
  7. ASPIRIN [Concomitant]
  8. ZOLOFT [Concomitant]
  9. ATIVAN [Concomitant]

REACTIONS (7)
  - HAEMOGLOBIN DECREASED [None]
  - IMMOBILE [None]
  - MALIGNANT NEOPLASM PROGRESSION [None]
  - METASTATIC MALIGNANT MELANOMA [None]
  - OEDEMA PERIPHERAL [None]
  - SKIN HAEMORRHAGE [None]
  - SPINAL CORD COMPRESSION [None]
